FAERS Safety Report 7065413-0 (Version None)
Quarter: 2010Q4

REPORT INFORMATION
  Report Type: 
  Country: None (occurrence: None)
  Receive Date: 20101019
  Receipt Date: 20101008
  Transmission Date: 20110411
  Serious: Yes (Other)
  Sender: FDA-Public Use
  Company Number: 1000016199

PATIENT
  Age: 29 Year
  Sex: Female

DRUGS (1)
  1. LEXAPRO [Suspect]
     Indication: DEPRESSION
     Dosage: 10 MG (10 MG, 1 IN 1 D), ORAL
     Route: 048
     Dates: start: 20100317, end: 20100812

REACTIONS (5)
  - ALCOHOL USE [None]
  - ANGER [None]
  - IMPAIRED DRIVING ABILITY [None]
  - MOOD SWINGS [None]
  - ROAD TRAFFIC ACCIDENT [None]
